FAERS Safety Report 9332433 (Version 2)
Quarter: 2013Q4

REPORT INFORMATION
  Report Type: Spontaneous
  Country: GB (occurrence: GB)
  Receive Date: 20130606
  Receipt Date: 20131126
  Transmission Date: 20140711
  Serious: Yes (Other)
  Sender: FDA-Public Use
  Company Number: GB-ACCORD-017872

PATIENT
  Age: 71 Year
  Sex: Female
  Weight: 69 kg

DRUGS (5)
  1. CANDESARTAN [Concomitant]
     Dates: start: 20130110
  2. CLOPIDOGREL [Suspect]
     Indication: MYOCARDIAL ISCHAEMIA
     Dates: start: 20130510
  3. ASPIRIN [Concomitant]
     Dates: start: 20130211
  4. GLYCERYL TRINITRATE [Concomitant]
     Dates: start: 20130211, end: 20130401
  5. BISOPROLOL [Concomitant]
     Dates: start: 20130211

REACTIONS (2)
  - Petechiae [Recovered/Resolved]
  - Rash pruritic [Recovered/Resolved]
